FAERS Safety Report 23897305 (Version 5)
Quarter: 2025Q1

REPORT INFORMATION
  Report Type: Report from Study
  Country: BR (occurrence: BR)
  Receive Date: 20240524
  Receipt Date: 20250303
  Transmission Date: 20250409
  Serious: Yes (Hospitalization, Other)
  Sender: JOHNSON AND JOHNSON
  Company Number: BR-JNJFOC-20240546475

PATIENT
  Age: 17 Year
  Sex: Female
  Weight: 40 kg

DRUGS (7)
  1. INFLIXIMAB [Suspect]
     Active Substance: INFLIXIMAB
     Indication: Crohn^s disease
     Dosage: DOSAGE OF 4 VIALS?100MG 4 AMPOULES IN 250ML OF SF 0.9%
     Route: 041
     Dates: start: 202309
  2. INFLIXIMAB [Suspect]
     Active Substance: INFLIXIMAB
     Dosage: 4 VIALS
     Route: 041
  3. INFLIXIMAB [Suspect]
     Active Substance: INFLIXIMAB
     Indication: Crohn^s disease
     Dosage: 4 AMPOULES
     Route: 041
  4. REMICADE [Suspect]
     Active Substance: INFLIXIMAB
     Indication: Crohn^s disease
     Route: 041
  5. REMICADE [Suspect]
     Active Substance: INFLIXIMAB
     Route: 041
     Dates: start: 20220819
  6. INFLIXIMAB [Suspect]
     Active Substance: INFLIXIMAB
     Indication: Crohn^s disease
     Dates: start: 202210
  7. AZATHIOPRINE [Concomitant]
     Active Substance: AZATHIOPRINE

REACTIONS (13)
  - Nosocomial infection [Recovered/Resolved]
  - Crohn^s disease [Unknown]
  - Fistula [Recovering/Resolving]
  - Drug hypersensitivity [Recovering/Resolving]
  - Hospitalisation [Recovered/Resolved]
  - Weight decreased [Recovering/Resolving]
  - Fatigue [Unknown]
  - Drug specific antibody present [Recovering/Resolving]
  - Bedridden [Recovering/Resolving]
  - Product dose omission issue [Unknown]
  - Product prescribing error [Unknown]
  - Off label use [Unknown]
  - Drug ineffective [Unknown]

NARRATIVE: CASE EVENT DATE: 20230401
